FAERS Safety Report 8904768 (Version 1)
Quarter: 2012Q4

REPORT INFORMATION
  Report Type: 
  Country: ES (occurrence: ES)
  Receive Date: 20121112
  Receipt Date: 20121112
  Transmission Date: 20130627
  Serious: Yes (Other)
  Sender: FDA-Public Use
  Company Number: ES-PFIZER INC-2012278500

PATIENT
  Age: 62 Year
  Sex: Male

DRUGS (6)
  1. OXALIPLATIN [Suspect]
     Indication: BONE METASTASES
     Dosage: Every 21 days
  2. OXALIPLATIN [Suspect]
     Indication: LUNG METASTASES
  3. GEMCITABINE HYDROCHLORIDE [Suspect]
     Indication: BONE METASTASES
     Dosage: Every 21 days
  4. GEMCITABINE HYDROCHLORIDE [Suspect]
     Indication: LUNG METASTASES
  5. ACETAMINOPHEN [Concomitant]
  6. TRAMADOL [Concomitant]

REACTIONS (2)
  - Posterior reversible encephalopathy syndrome [Unknown]
  - Epilepsy [Unknown]
